FAERS Safety Report 12617233 (Version 1)
Quarter: 2016Q3

REPORT INFORMATION
  Report Type: Spontaneous
  Country: US (occurrence: US)
  Receive Date: 20160803
  Receipt Date: 20160803
  Transmission Date: 20161109
  Serious: No
  Sender: FDA-Public Use
  Company Number: US-HORIZON-PEN-0354-2016

PATIENT
  Age: 85 Year
  Sex: Female

DRUGS (13)
  1. LEVOTHYROXINE. [Concomitant]
     Active Substance: LEVOTHYROXINE
  2. LIDODERM 5 [Concomitant]
     Active Substance: LIDOCAINE
  3. DULOXETINE HCL [Concomitant]
     Active Substance: DULOXETINE HYDROCHLORIDE
  4. MELATONIN [Concomitant]
     Active Substance: MELATONIN
  5. METOPROLOL TARTRATE. [Concomitant]
     Active Substance: METOPROLOL TARTRATE
  6. COUMADIN [Concomitant]
     Active Substance: WARFARIN SODIUM
  7. MICARDIS [Concomitant]
     Active Substance: TELMISARTAN
  8. VITAMIN D3 [Concomitant]
     Active Substance: CHOLECALCIFEROL
  9. BLUE EMU (ALOE VERA LEAF\EMU OIL\GLUCOSAMINE) [Suspect]
     Active Substance: ALOE VERA LEAF\EMU OIL\GLUCOSAMINE
  10. ALLOPURINOL. [Concomitant]
     Active Substance: ALLOPURINOL
  11. PROBIOTICS [Concomitant]
     Active Substance: PROBIOTICS NOS
  12. PENNSAID [Suspect]
     Active Substance: DICLOFENAC SODIUM
     Indication: ARTHRALGIA
     Dates: start: 201607
  13. FUROSEMIDE. [Concomitant]
     Active Substance: FUROSEMIDE

REACTIONS (5)
  - Intentional product misuse [Unknown]
  - Diarrhoea [Recovering/Resolving]
  - Feeling abnormal [None]
  - Somnolence [Recovering/Resolving]
  - Nausea [Unknown]

NARRATIVE: CASE EVENT DATE: 201607
